FAERS Safety Report 7099929-8 (Version None)
Quarter: 2010Q4

REPORT INFORMATION
  Report Type: 
  Country: None (occurrence: None)
  Receive Date: 20101112
  Receipt Date: 20101101
  Transmission Date: 20110411
  Serious: Yes (Other)
  Sender: FDA-Public Use
  Company Number: US-JNJFOC-20100703766

PATIENT
  Sex: Female
  Weight: 58.97 kg

DRUGS (3)
  1. LEVAQUIN [Suspect]
     Indication: BRONCHITIS
     Route: 048
  2. LEVAQUIN [Suspect]
     Indication: CHRONIC OBSTRUCTIVE PULMONARY DISEASE
     Route: 048
  3. PREDNISONE [Suspect]
     Indication: CHRONIC OBSTRUCTIVE PULMONARY DISEASE

REACTIONS (7)
  - ARTHRALGIA [None]
  - JOINT EFFUSION [None]
  - MENISCUS LESION [None]
  - MUSCULAR WEAKNESS [None]
  - RADICULOPATHY [None]
  - TENDON RUPTURE [None]
  - TENDONITIS [None]
